FAERS Safety Report 25396919 (Version 1)
Quarter: 2025Q2

REPORT INFORMATION
  Report Type: Report from Study
  Country: IT (occurrence: IT)
  Receive Date: 20250604
  Receipt Date: 20250604
  Transmission Date: 20250716
  Serious: Yes (Other)
  Sender: MYLAN
  Company Number: None

PATIENT
  Age: 84 Year
  Sex: Male

DRUGS (40)
  1. VENLAFAXINE [Suspect]
     Active Substance: VENLAFAXINE HYDROCHLORIDE
     Indication: Product used for unknown indication
  2. VENLAFAXINE [Suspect]
     Active Substance: VENLAFAXINE HYDROCHLORIDE
     Route: 065
  3. VENLAFAXINE [Suspect]
     Active Substance: VENLAFAXINE HYDROCHLORIDE
     Route: 065
  4. VENLAFAXINE [Suspect]
     Active Substance: VENLAFAXINE HYDROCHLORIDE
  5. AMISULPRIDE [Suspect]
     Active Substance: AMISULPRIDE
     Indication: Product used for unknown indication
  6. AMISULPRIDE [Suspect]
     Active Substance: AMISULPRIDE
     Route: 065
  7. AMISULPRIDE [Suspect]
     Active Substance: AMISULPRIDE
     Route: 065
  8. AMISULPRIDE [Suspect]
     Active Substance: AMISULPRIDE
  9. MIRTAZAPINE [Suspect]
     Active Substance: MIRTAZAPINE
     Indication: Product used for unknown indication
  10. MIRTAZAPINE [Suspect]
     Active Substance: MIRTAZAPINE
     Route: 065
  11. MIRTAZAPINE [Suspect]
     Active Substance: MIRTAZAPINE
     Route: 065
  12. MIRTAZAPINE [Suspect]
     Active Substance: MIRTAZAPINE
  13. BROMAZEPAM [Suspect]
     Active Substance: BROMAZEPAM
     Indication: Product used for unknown indication
  14. BROMAZEPAM [Suspect]
     Active Substance: BROMAZEPAM
     Route: 065
  15. BROMAZEPAM [Suspect]
     Active Substance: BROMAZEPAM
     Route: 065
  16. BROMAZEPAM [Suspect]
     Active Substance: BROMAZEPAM
  17. FEBUXOSTAT [Suspect]
     Active Substance: FEBUXOSTAT
     Indication: Product used for unknown indication
  18. FEBUXOSTAT [Suspect]
     Active Substance: FEBUXOSTAT
     Route: 065
  19. FEBUXOSTAT [Suspect]
     Active Substance: FEBUXOSTAT
     Route: 065
  20. FEBUXOSTAT [Suspect]
     Active Substance: FEBUXOSTAT
  21. Luvion [Concomitant]
  22. Luvion [Concomitant]
     Route: 065
  23. Luvion [Concomitant]
     Route: 065
  24. Luvion [Concomitant]
  25. LANSOPRAZOLE [Concomitant]
     Active Substance: LANSOPRAZOLE
  26. LANSOPRAZOLE [Concomitant]
     Active Substance: LANSOPRAZOLE
     Route: 065
  27. LANSOPRAZOLE [Concomitant]
     Active Substance: LANSOPRAZOLE
     Route: 065
  28. LANSOPRAZOLE [Concomitant]
     Active Substance: LANSOPRAZOLE
  29. FUROSEMIDE [Concomitant]
     Active Substance: FUROSEMIDE
  30. FUROSEMIDE [Concomitant]
     Active Substance: FUROSEMIDE
     Route: 065
  31. FUROSEMIDE [Concomitant]
     Active Substance: FUROSEMIDE
     Route: 065
  32. FUROSEMIDE [Concomitant]
     Active Substance: FUROSEMIDE
  33. TICLOPIDINE [Concomitant]
     Active Substance: TICLOPIDINE
  34. TICLOPIDINE [Concomitant]
     Active Substance: TICLOPIDINE
     Route: 065
  35. TICLOPIDINE [Concomitant]
     Active Substance: TICLOPIDINE
     Route: 065
  36. TICLOPIDINE [Concomitant]
     Active Substance: TICLOPIDINE
  37. LITHIUM CARBONATE [Concomitant]
     Active Substance: LITHIUM CARBONATE
  38. LITHIUM CARBONATE [Concomitant]
     Active Substance: LITHIUM CARBONATE
     Route: 065
  39. LITHIUM CARBONATE [Concomitant]
     Active Substance: LITHIUM CARBONATE
     Route: 065
  40. LITHIUM CARBONATE [Concomitant]
     Active Substance: LITHIUM CARBONATE

REACTIONS (2)
  - Faecaloma [Recovering/Resolving]
  - Constipation [Recovering/Resolving]

NARRATIVE: CASE EVENT DATE: 20250522
